FAERS Safety Report 4435971-0 (Version None)
Quarter: 2004Q3

REPORT INFORMATION
  Report Type: 
  Country: None (occurrence: None)
  Receive Date: 20040726
  Receipt Date: 20040521
  Transmission Date: 20050211
  Serious: No
  Sender: FDA-Public Use
  Company Number: USA040567593

PATIENT
  Age: 63 Year
  Sex: Female

DRUGS (6)
  1. FORTEO [Suspect]
     Indication: OSTEOPOROSIS
     Dosage: 20 UG/ 1 AT BEDTIME
     Dates: start: 20040421
  2. DILANTIN [Concomitant]
  3. PREMARIN [Concomitant]
  4. ACTONEL [Concomitant]
  5. CALCIUM [Concomitant]
  6. PREVACID [Concomitant]

REACTIONS (5)
  - DIFFICULTY IN WALKING [None]
  - HEART RATE INCREASED [None]
  - MOTION SICKNESS [None]
  - MUSCULAR WEAKNESS [None]
  - NERVOUSNESS [None]
